FAERS Safety Report 5247328-3 (Version None)
Quarter: 2007Q1

REPORT INFORMATION
  Report Type: 
  Country: None (occurrence: None)
  Receive Date: 20070223
  Receipt Date: 20070223
  Transmission Date: 20070707
  Serious: Yes (Hospitalization)
  Sender: FDA-Public Use
  Company Number: None

PATIENT
  Age: 73 Year
  Sex: Female
  Weight: 69.9 kg

DRUGS (10)
  1. AZATHIOPRINE [Suspect]
     Indication: IDIOPATHIC PULMONARY FIBROSIS
     Dosage: 50MG  THREE TIMES DAILY PO
     Route: 048
     Dates: start: 20060411, end: 20060729
  2. COLCHICINE [Concomitant]
  3. ACETYLCYSTEINE [Concomitant]
  4. PREDNISONE [Concomitant]
  5. FUROSEMIDE [Concomitant]
  6. TRAZODONE HCL [Concomitant]
  7. ESCITALOPRAM [Concomitant]
  8. RISPERDAL [Concomitant]
  9. METFORMIN HCL [Concomitant]
  10. RISENDRONATE [Concomitant]

REACTIONS (6)
  - ANAEMIA [None]
  - COUGH [None]
  - DYSPNOEA [None]
  - PANCYTOPENIA [None]
  - TRANSAMINASES INCREASED [None]
  - TREATMENT NONCOMPLIANCE [None]
